FAERS Safety Report 6679978-1 (Version None)
Quarter: 2010Q2

REPORT INFORMATION
  Report Type: 
  Country: None (occurrence: None)
  Receive Date: 20100409
  Receipt Date: 20100329
  Transmission Date: 20101027
  Serious: Yes (Hospitalization)
  Sender: FDA-Public Use
  Company Number: 005382

PATIENT
  Sex: Female
  Weight: 75.9 kg

DRUGS (9)
  1. CERTOLIZUMAB PEGOL [Suspect]
     Indication: RHEUMATOID ARTHRITIS
     Dosage: SUBCUTANEOUS
     Route: 058
     Dates: start: 20090826, end: 20091007
  2. APO-INDOMETHACIN [Concomitant]
  3. METHOTREXATE [Concomitant]
  4. TRAMADOL HCL [Concomitant]
  5. APAP TAB [Concomitant]
  6. MULTI-VITAMINS [Concomitant]
  7. CALCIUM [Concomitant]
  8. REFRESH LIQUIGEL /00007001/ [Concomitant]
  9. FOLIC ACID [Concomitant]

REACTIONS (6)
  - BLOOD LACTIC ACID INCREASED [None]
  - CELLULITIS [None]
  - DRY EYE [None]
  - EAR LOBE INFECTION [None]
  - INFLUENZA [None]
  - SEPSIS [None]
